FAERS Safety Report 5000775-7 (Version None)
Quarter: 2006Q2

REPORT INFORMATION
  Report Type: 
  Country: None (occurrence: None)
  Receive Date: 20060512
  Receipt Date: 20050921
  Transmission Date: 20061013
  Serious: Yes (Hospitalization)
  Sender: FDA-Public Use
  Company Number: US-MERCK-0509USA03193

PATIENT
  Age: 51 Year
  Sex: Male
  Weight: 99 kg

DRUGS (4)
  1. VIOXX [Suspect]
     Indication: ARTHRITIS
     Route: 048
     Dates: start: 20010509, end: 20040826
  2. VIOXX [Suspect]
     Route: 048
     Dates: start: 20020918
  3. PAXIL [Concomitant]
     Indication: ANXIETY
     Route: 048
  4. PAXIL [Concomitant]
     Indication: DEPRESSION
     Route: 048

REACTIONS (18)
  - AFFECTIVE DISORDER [None]
  - ANXIETY [None]
  - APATHY [None]
  - CAROTID ARTERY STENOSIS [None]
  - CARPAL TUNNEL SYNDROME [None]
  - CEREBROVASCULAR ACCIDENT [None]
  - DEPRESSED MOOD [None]
  - DUPUYTREN'S CONTRACTURE [None]
  - GASTROINTESTINAL PAIN [None]
  - HEADACHE [None]
  - HYPERCHOLESTEROLAEMIA [None]
  - HYPERTENSION [None]
  - HYPOMANIA [None]
  - INTERVERTEBRAL DISC DISORDER [None]
  - LIVER FUNCTION TEST ABNORMAL [None]
  - OBESITY [None]
  - SLEEP DISORDER [None]
  - VERTEBROBASILAR INSUFFICIENCY [None]
